FAERS Safety Report 23212604 (Version 1)
Quarter: 2023Q4

REPORT INFORMATION
  Report Type: Spontaneous
  Country: US (occurrence: None)
  Receive Date: 20231121
  Receipt Date: 20231121
  Transmission Date: 20240109
  Serious: Yes (Hospitalization)
  Sender: FDA-Public Use
  Company Number: None

PATIENT
  Age: 63 Year
  Sex: Female

DRUGS (2)
  1. MYCOPHENOLATE MOFETIL [Suspect]
     Active Substance: MYCOPHENOLATE MOFETIL
     Dosage: 500 MG TWICE A DAY ORAL?
     Route: 048
  2. ENVARSUS XR [Suspect]
     Active Substance: TACROLIMUS
     Dosage: 2.25 MG DAILY ORAL?
     Route: 048

REACTIONS (2)
  - Diarrhoea [None]
  - Illness [None]

NARRATIVE: CASE EVENT DATE: 20231121
